FAERS Safety Report 8495428-7 (Version None)
Quarter: 2012Q3

REPORT INFORMATION
  Report Type: 
  Country: None (occurrence: None)
  Receive Date: 20120709
  Receipt Date: 20120627
  Transmission Date: 20120928
  Serious: Yes (Hospitalization)
  Sender: FDA-Public Use
  Company Number: JP-VERTEX PHARMACEUTICALS INC.-AE-2012-009791

PATIENT
  Age: 68 Year
  Sex: Female

DRUGS (10)
  1. TELAVIC (TELAPREVIR) [Suspect]
     Indication: HEPATITIS C
     Route: 048
     Dates: start: 20120404, end: 20120508
  2. SELBEX [Concomitant]
     Route: 048
  3. ICROL [Concomitant]
     Route: 048
  4. PEGINTERFERON ALFA-2B [Concomitant]
     Indication: HEPATITIS C
     Route: 051
     Dates: start: 20120404, end: 20120508
  5. LEMALC [Concomitant]
     Route: 048
  6. RIBAVIRIN [Concomitant]
     Route: 048
  7. ALENDRONATE SODIUM [Concomitant]
     Route: 048
     Dates: start: 20120411
  8. NEO-MINOPHAGEN C [Concomitant]
     Dates: start: 20120126
  9. DOGMATYL [Concomitant]
     Route: 048
     Dates: start: 20120425, end: 20120524
  10. RIBAVIRIN [Concomitant]
     Route: 048
     Dates: start: 20120510, end: 20120524

REACTIONS (2)
  - RESTLESS LEGS SYNDROME [None]
  - OFF LABEL USE [None]
